FAERS Safety Report 25239391 (Version 4)
Quarter: 2025Q3

REPORT INFORMATION
  Report Type: Spontaneous
  Country: JP (occurrence: JP)
  Receive Date: 20250425
  Receipt Date: 20250902
  Transmission Date: 20251020
  Serious: Yes (Death)
  Sender: ALEXION PHARMACEUTICALS
  Company Number: JP-ASTRAZENECA-250040573_013120_P_1

PATIENT
  Age: 84 Year
  Sex: Female
  Weight: 53.6 kg

DRUGS (6)
  1. IMFINZI [Suspect]
     Active Substance: DURVALUMAB
     Indication: Hepatocellular carcinoma
     Dosage: 1500 MILLIGRAM, Q4W
     Dates: start: 20250116, end: 20250116
  2. IMJUDO [Suspect]
     Active Substance: TREMELIMUMAB\TREMELIMUMAB-ACTL
     Indication: Hepatocellular carcinoma
     Dates: start: 20250116, end: 20250116
  3. EPIRUBICIN [Concomitant]
     Active Substance: EPIRUBICIN
  4. Miripla [Concomitant]
  5. LENVIMA [Concomitant]
     Active Substance: LENVATINIB
  6. PREDONINE [Concomitant]
     Active Substance: PREDNISOLONE

REACTIONS (3)
  - Enterocolitis [Fatal]
  - Sepsis [Fatal]
  - Disseminated intravascular coagulation [Fatal]

NARRATIVE: CASE EVENT DATE: 20250203
